FAERS Safety Report 8549018-8 (Version None)
Quarter: 2012Q3

REPORT INFORMATION
  Report Type: 
  Country: None (occurrence: None)
  Receive Date: 20120730
  Receipt Date: 20120720
  Transmission Date: 20120928
  Serious: Yes (Hospitalization)
  Sender: FDA-Public Use
  Company Number: DE-UCBSA-021659

PATIENT
  Age: 57 Year
  Sex: Male

DRUGS (47)
  1. NEUPRO [Suspect]
     Route: 062
     Dates: start: 20090501, end: 20090507
  2. NEUPRO [Suspect]
     Route: 062
     Dates: start: 20101012, end: 20101012
  3. PRIMIDONE [Suspect]
     Dates: start: 20081104, end: 20081110
  4. LEVOTHYROXINE SODIUM [Concomitant]
     Indication: HYPOTHYROIDISM
  5. MADOPAR DEPOT [Concomitant]
     Dosage: OTHER 3/4
     Dates: start: 20101014, end: 20101014
  6. NEUPRO [Suspect]
     Route: 062
     Dates: start: 20090626, end: 20101004
  7. NEUPRO [Suspect]
     Route: 062
     Dates: start: 20101005, end: 20101007
  8. NEUPRO [Suspect]
     Route: 062
     Dates: start: 20101013, end: 20101013
  9. PRIMIDONE [Suspect]
     Indication: PARKINSON'S DISEASE
     Dates: start: 20080707, end: 20080708
  10. PRIMIDONE [Suspect]
     Dosage: DOSE: OTHER 2-0-1
     Dates: start: 20080916, end: 20081103
  11. CLARIUM [Suspect]
     Indication: PARKINSON'S DISEASE
     Dates: start: 20081104, end: 20081108
  12. CLARIUM [Suspect]
     Dates: start: 20081111, end: 20090312
  13. CLONAZEPAM [Concomitant]
     Dates: start: 20090313
  14. PROTAPHANE [Concomitant]
     Dosage: 16 OTHER IE; AMPOULES
     Dates: start: 20100801
  15. MADOPAR DEPOT [Concomitant]
     Indication: PARKINSON'S DISEASE
     Dates: start: 20100608, end: 20101013
  16. NEUPRO [Suspect]
     Route: 062
     Dates: start: 20080609, end: 20080619
  17. NEUPRO [Suspect]
     Route: 062
     Dates: start: 20080620, end: 20080622
  18. NEUPRO [Suspect]
     Route: 062
     Dates: start: 20090608, end: 20090625
  19. NEUPRO [Suspect]
     Route: 062
     Dates: start: 20101008, end: 20101011
  20. NEUPRO [Suspect]
     Route: 062
     Dates: start: 20101018
  21. PRIMIDONE [Suspect]
     Dates: start: 20080710, end: 20080901
  22. PRIMIDONE [Suspect]
     Dosage: OTHER 1-0-2
     Dates: start: 20100721, end: 20100920
  23. PRIMIDONE [Suspect]
     Dates: start: 20100921, end: 20101004
  24. CLARIUM [Suspect]
     Dates: start: 20081109, end: 20081110
  25. CLARIUM [Suspect]
     Dosage: DOSE DECREASED
     Dates: start: 20101004
  26. PROTAPHANE [Concomitant]
     Indication: DIABETES MELLITUS
     Dosage: AMPOULES
     Dates: end: 20090801
  27. NEUPRO [Suspect]
     Route: 062
     Dates: start: 20080623, end: 20081102
  28. NEUPRO [Suspect]
     Route: 062
     Dates: start: 20090303, end: 20090430
  29. PRIMIDONE [Suspect]
     Dates: start: 20101008
  30. CLARIUM [Suspect]
     Dosage: FREQUENCY: OTHER 2-1-1
     Dates: start: 20091110, end: 20101003
  31. SELEGELIN [Suspect]
     Indication: PARKINSON'S DISEASE
     Dates: start: 20081114, end: 20101004
  32. PRIMIDONE [Suspect]
     Dates: start: 20081111, end: 20100422
  33. CLARIUM [Suspect]
     Dosage: FREQUENCY: OTHER 2-0-1
     Dates: start: 20090509, end: 20091109
  34. NOVORAPID [Concomitant]
     Indication: DIABETES MELLITUS
     Dosage: IU AS REQUIRED; AMPOULES
  35. CLONAZEPAM [Concomitant]
     Indication: SLEEP DISORDER
     Dates: start: 20090302, end: 20090312
  36. NEUPRO [Suspect]
     Route: 062
     Dates: start: 20101014, end: 20101017
  37. PRIMIDONE [Suspect]
     Dates: start: 20080709, end: 20080709
  38. PRIMIDONE [Suspect]
     Dates: start: 20100423, end: 20100720
  39. NEUPRO [Suspect]
     Indication: PARKINSON'S DISEASE
     Route: 062
     Dates: start: 20080604, end: 20080608
  40. NEUPRO [Suspect]
     Route: 062
     Dates: start: 20081110, end: 20090302
  41. MOVIPREP [Concomitant]
     Indication: CONSTIPATION
     Dosage: SUSPENSION
     Dates: start: 20091001
  42. MADOPAR DEPOT [Concomitant]
     Dates: start: 20101029
  43. NEUPRO [Suspect]
     Route: 062
     Dates: start: 20081103, end: 20081109
  44. PRIMIDONE [Suspect]
     Dates: start: 20101005, end: 20101007
  45. CLARIUM [Suspect]
     Dosage: DOSE: OTHER 2-1-1
     Dates: start: 20090313, end: 20090608
  46. LEVOTHYROXINE SODIUM [Concomitant]
  47. MADOPAR DEPOT [Concomitant]
     Dates: start: 20101015, end: 20101028

REACTIONS (1)
  - PARKINSON'S DISEASE [None]
